FAERS Safety Report 15673911 (Version 2)
Quarter: 2018Q4

REPORT INFORMATION
  Report Type: Report from Study
  Country: US (occurrence: US)
  Receive Date: 20181129
  Receipt Date: 20181211
  Transmission Date: 20190205
  Serious: Yes (Hospitalization, Other)
  Sender: FDA-Public Use
  Company Number: US-GILEAD-2018-0377514

PATIENT
  Age: 51 Year
  Sex: Female

DRUGS (5)
  1. PULMOZYME [Concomitant]
     Active Substance: DORNASE ALFA
  2. TEZACAFTOR [Concomitant]
     Active Substance: TEZACAFTOR
  3. AZTREONAM LYSINE [Suspect]
     Active Substance: AZTREONAM LYSINE
     Indication: CYSTIC FIBROSIS
     Dosage: 75 MG, TID, QOM
     Route: 055
     Dates: start: 20181128
  4. MIRALAX [Concomitant]
     Active Substance: POLYETHYLENE GLYCOL 3350
  5. IVACAFTOR [Concomitant]
     Active Substance: IVACAFTOR

REACTIONS (1)
  - Cystic fibrosis [Unknown]

NARRATIVE: CASE EVENT DATE: 201811
